FAERS Safety Report 10479879 (Version 1)
Quarter: 2014Q3

REPORT INFORMATION
  Report Type: Spontaneous
  Country: US (occurrence: US)
  Receive Date: 20140929
  Receipt Date: 20140929
  Transmission Date: 20150326
  Serious: Yes (Other)
  Sender: FDA-Public Use
  Company Number: US-UCBSA-2014012506

PATIENT
  Age: 40 Year
  Sex: Female

DRUGS (2)
  1. KEPPRA [Suspect]
     Active Substance: LEVETIRACETAM
     Dosage: 2000MG PER DAY
  2. KEPPRA [Suspect]
     Active Substance: LEVETIRACETAM
     Indication: CONVULSION
     Dosage: 3000 MG

REACTIONS (7)
  - Hypoaesthesia [Unknown]
  - Arthritis [Unknown]
  - Multiple sclerosis [Unknown]
  - Spinal pain [Unknown]
  - Gait disturbance [Unknown]
  - Head discomfort [Unknown]
  - Intervertebral disc protrusion [Unknown]
